FAERS Safety Report 10230965 (Version 1)
Quarter: 2014Q2

REPORT INFORMATION
  Report Type: Spontaneous
  Country: US (occurrence: US)
  Receive Date: 20140611
  Receipt Date: 20140611
  Transmission Date: 20141212
  Serious: Yes (Other)
  Sender: FDA-Public Use
  Company Number: US-PFIZER INC-2014153302

PATIENT
  Age: 79 Year
  Sex: Female

DRUGS (1)
  1. ARTHROTEC [Suspect]
     Dosage: 1 DF, 2X/DAY (MISOPROSTOL 200 MCG/ DICLOFENAC SODIUM 75 MG)

REACTIONS (2)
  - Arthropathy [Unknown]
  - Arthralgia [Unknown]
